FAERS Safety Report 11368533 (Version 2)
Quarter: 2015Q3

REPORT INFORMATION
  Report Type: Report from Study
  Country: GB (occurrence: GB)
  Receive Date: 20150812
  Receipt Date: 20150823
  Transmission Date: 20151125
  Serious: Yes (Hospitalization, Disabling, Other)
  Sender: FDA-Public Use
  Company Number: GB-AMGEN-GBRCT2015081295

PATIENT
  Age: 65 Year
  Sex: Female
  Weight: 54 kg

DRUGS (9)
  1. OMEGA 3 FISH OIL                   /01334101/ [Concomitant]
     Dosage: 1 UNK, UNK
     Route: 048
     Dates: start: 2008
  2. ACCRETE D3 [Concomitant]
     Dosage: 2 UNK, UNK
     Route: 048
     Dates: start: 20030808, end: 2015
  3. BETNOVATE [Concomitant]
     Active Substance: BETAMETHASONE
     Dosage: 1 UNK, UNK
     Route: 061
     Dates: start: 201106
  4. CALCIUM [Concomitant]
     Active Substance: CALCIUM
     Dosage: 600 MG, UNK
     Route: 048
     Dates: start: 20130808
  5. SIMVASTATIN. [Concomitant]
     Active Substance: SIMVASTATIN
     Dosage: 40 MG, UNK
     Route: 048
     Dates: start: 2010
  6. EVENING PRIMROSE OIL [Concomitant]
     Active Substance: EVENING PRIMROSE OIL
     Dosage: 1 UNK, UNK
     Route: 048
     Dates: start: 2003
  7. PLACEBO [Suspect]
     Active Substance: UNSPECIFIED INGREDIENT
     Indication: OSTEOPOROSIS POSTMENOPAUSAL
     Dosage: UNK
     Route: 058
     Dates: start: 20130827, end: 20140801
  8. VITAMIN D                          /00107901/ [Concomitant]
     Active Substance: ERGOCALCIFEROL
     Dosage: 400 IU, UNK
     Route: 048
     Dates: start: 20130808
  9. DENOSUMAB [Suspect]
     Active Substance: DENOSUMAB
     Indication: OSTEOPOROSIS POSTMENOPAUSAL
     Dosage: 1 ML, UNK
     Route: 058
     Dates: start: 20140826, end: 20150801

REACTIONS (1)
  - Adenocarcinoma of colon [Not Recovered/Not Resolved]

NARRATIVE: CASE EVENT DATE: 201502
